FAERS Safety Report 8352988-4 (Version None)
Quarter: 2012Q2

REPORT INFORMATION
  Report Type: 
  Country: None (occurrence: None)
  Receive Date: 20120511
  Receipt Date: 20120503
  Transmission Date: 20120825
  Serious: Yes (Hospitalization)
  Sender: FDA-Public Use
  Company Number: BR-NOVOPROD-346456

PATIENT
  Age: 55 Year
  Sex: Male
  Weight: 79 kg

DRUGS (7)
  1. NOVOLIN N [Suspect]
     Indication: TYPE 2 DIABETES MELLITUS
     Dosage: 25 IU, QD
     Route: 058
     Dates: start: 20090302
  2. ISOSORBIDE MONONITRATE [Concomitant]
     Indication: HYPERTENSION
     Dosage: 1 TAB, QD
     Route: 048
     Dates: start: 20090302
  3. CELOZOC [Concomitant]
     Dosage: 01 TABLET / ORAL
     Dates: start: 20090302
  4. APRESOLINA [Concomitant]
     Indication: HYPERTENSION
     Dosage: 1 TAB, QD
     Route: 048
     Dates: start: 20110302
  5. PRAMIPEXOLE DIHYDROCHLORIDE [Concomitant]
     Dosage: 1 TAB, QD
     Route: 048
     Dates: start: 20100302
  6. SIMVASTATIN [Concomitant]
     Indication: HYPERCHOLESTEROLAEMIA
     Dosage: 1 TAB, QD
     Route: 048
     Dates: start: 20090302
  7. DIAZEPAN [Concomitant]
     Indication: INSOMNIA
     Dosage: ORAL
     Route: 048
     Dates: start: 20090302

REACTIONS (2)
  - DRUG INEFFECTIVE [None]
  - BLOOD GLUCOSE [None]
